FAERS Safety Report 7310143-0 (Version None)
Quarter: 2011Q1

REPORT INFORMATION
  Report Type: 
  Country: None (occurrence: None)
  Receive Date: 20110224
  Receipt Date: 20110216
  Transmission Date: 20110831
  Serious: Yes (Other)
  Sender: FDA-Public Use
  Company Number: IE-ASTELLAS-2011EU000833

PATIENT

DRUGS (1)
  1. VESITIRIM [Suspect]
     Dosage: 5 MG, UNKNOWN/D
     Route: 065

REACTIONS (4)
  - CHOROIDAL DETACHMENT [None]
  - EYE INFLAMMATION [None]
  - EYE PAIN [None]
  - EPISCLERITIS [None]
